FAERS Safety Report 21170863 (Version 1)
Quarter: 2022Q3

REPORT INFORMATION
  Report Type: Spontaneous
  Country: FR (occurrence: FR)
  Receive Date: 20220804
  Receipt Date: 20220804
  Transmission Date: 20221027
  Serious: Yes (Hospitalization)
  Sender: FDA-Public Use
  Company Number: None

PATIENT
  Age: 92 Year
  Sex: Female
  Weight: 108 kg

DRUGS (5)
  1. EBASTINE [Suspect]
     Active Substance: EBASTINE
     Indication: Antiallergic therapy
     Dosage: IF NECESSARY
     Route: 048
     Dates: end: 20220524
  2. LERCANIDIPINE [Suspect]
     Active Substance: LERCANIDIPINE
     Indication: Hypertension
     Dosage: 10 MILLIGRAM, QD, FORMULATION: SCORED FILM COATED TABLET
     Route: 048
     Dates: end: 20220524
  3. IMODIUM [Suspect]
     Active Substance: LOPERAMIDE HYDROCHLORIDE
     Indication: Diarrhoea
     Dosage: UNK
     Route: 048
     Dates: end: 20220524
  4. DIOSMIN [Suspect]
     Active Substance: DIOSMIN
     Indication: Angiopathy
     Dosage: 200 MG MORNING AND NOON
     Route: 048
     Dates: end: 20220524
  5. METFORMIN HYDROCHLORIDE [Suspect]
     Active Substance: METFORMIN HYDROCHLORIDE
     Indication: Type 1 diabetes mellitus
     Dosage: 500 MG MORNING AND NOON
     Route: 048
     Dates: end: 20220602

REACTIONS (1)
  - Vomiting [Recovered/Resolved with Sequelae]

NARRATIVE: CASE EVENT DATE: 20220520
